FAERS Safety Report 13409652 (Version 3)
Quarter: 2024Q1

REPORT INFORMATION
  Report Type: Spontaneous
  Country: US (occurrence: US)
  Receive Date: 20170406
  Receipt Date: 20240104
  Transmission Date: 20240410
  Serious: No
  Sender: FDA-Public Use
  Company Number: US-JNJFOC-20170206211

PATIENT
  Sex: Male

DRUGS (13)
  1. RISPERDAL [Suspect]
     Active Substance: RISPERIDONE
     Indication: Psychotic disorder
     Route: 048
     Dates: start: 20090326, end: 20090331
  2. RISPERDAL [Suspect]
     Active Substance: RISPERIDONE
     Indication: Bipolar disorder
     Route: 048
     Dates: start: 20090401, end: 20090402
  3. RISPERDAL [Suspect]
     Active Substance: RISPERIDONE
     Route: 048
     Dates: start: 20090402, end: 20090406
  4. RISPERDAL [Suspect]
     Active Substance: RISPERIDONE
     Route: 048
     Dates: start: 20090515
  5. RISPERDAL [Suspect]
     Active Substance: RISPERIDONE
     Route: 048
     Dates: start: 20090519
  6. RISPERDAL [Suspect]
     Active Substance: RISPERIDONE
     Route: 048
     Dates: end: 20090601
  7. RISPERDAL [Suspect]
     Active Substance: RISPERIDONE
     Route: 048
     Dates: end: 20090602
  8. RISPERDAL [Suspect]
     Active Substance: RISPERIDONE
     Route: 048
     Dates: start: 20090604, end: 20090917
  9. RISPERIDONE [Suspect]
     Active Substance: RISPERIDONE
     Indication: Psychotic disorder
     Route: 048
     Dates: start: 20090331, end: 20090417
  10. RISPERIDONE [Suspect]
     Active Substance: RISPERIDONE
     Indication: Bipolar disorder
  11. DEPAKOTE [Suspect]
     Active Substance: DIVALPROEX SODIUM
     Indication: Drug therapy
     Route: 048
  12. CELEXA [Suspect]
     Active Substance: CITALOPRAM HYDROBROMIDE
     Indication: Depression
     Route: 048
  13. CELEXA [Suspect]
     Active Substance: CITALOPRAM HYDROBROMIDE
     Route: 048

REACTIONS (3)
  - Gynaecomastia [Unknown]
  - Weight increased [Unknown]
  - Emotional disorder [Unknown]

NARRATIVE: CASE EVENT DATE: 20090101
